FAERS Safety Report 4288555-1 (Version None)
Quarter: 2004Q1

REPORT INFORMATION
  Report Type: 
  Country: None (occurrence: None)
  Receive Date: 20040205
  Receipt Date: 20031118
  Transmission Date: 20041129
  Serious: Yes (Hospitalization)
  Sender: FDA-Public Use
  Company Number: MEDI-0001151 (0)

PATIENT
  Age: 54 Year
  Sex: Male
  Weight: 86.1834 kg

DRUGS (6)
  1. ETHYOL [Suspect]
     Indication: RADIOTHERAPY
     Dosage: 500 MG, QD, SUBCUTANEOUS
     Route: 058
     Dates: start: 20031107, end: 20031117
  2. CISPLATIN [Concomitant]
  3. NEXIUM [Concomitant]
  4. COMPAZINE [Concomitant]
  5. XANAX [Concomitant]
  6. KYTRIL [Concomitant]

REACTIONS (8)
  - DEHYDRATION [None]
  - DIARRHOEA [None]
  - GASTROENTERITIS [None]
  - HYPOTENSION [None]
  - NAUSEA [None]
  - SEPSIS [None]
  - TACHYCARDIA [None]
  - VOMITING [None]
